FAERS Safety Report 7492431-0 (Version None)
Quarter: 2011Q2

REPORT INFORMATION
  Report Type: 
  Country: None (occurrence: None)
  Receive Date: 20110519
  Receipt Date: 20110504
  Transmission Date: 20111010
  Serious: No
  Sender: FDA-Public Use
  Company Number: US-B.I. PHARMACEUTICALS,INC./RIDGEFIELD-2011-BP-06295BP

PATIENT
  Age: 67 Year
  Sex: Female

DRUGS (9)
  1. PRADAXA [Suspect]
     Indication: ATRIAL FIBRILLATION
     Dosage: 300 MG
     Route: 048
     Dates: start: 20110201
  2. AMIODARONE HCL [Concomitant]
  3. FUROSEMIDE [Concomitant]
  4. PRISTIQ [Concomitant]
  5. PRADAXA [Suspect]
     Indication: ANTICOAGULANT THERAPY
  6. ASPIRIN [Concomitant]
  7. LOSARTAN POTASSIUM [Concomitant]
  8. METOPROLOL TARTRATE [Concomitant]
  9. NEXIUM [Concomitant]

REACTIONS (3)
  - HAEMATURIA [None]
  - GINGIVAL BLEEDING [None]
  - GINGIVAL PAIN [None]
